FAERS Safety Report 21039018 (Version 1)
Quarter: 2022Q3

REPORT INFORMATION
  Report Type: Spontaneous
  Country: FR (occurrence: FR)
  Receive Date: 20220704
  Receipt Date: 20220704
  Transmission Date: 20221027
  Serious: Yes (Hospitalization)
  Sender: FDA-Public Use
  Company Number: None

PATIENT
  Age: 61 Year
  Sex: Male
  Weight: 68 kg

DRUGS (4)
  1. BENDAMUSTINE HYDROCHLORIDE MONOHYDRATE [Suspect]
     Active Substance: BENDAMUSTINE HYDROCHLORIDE MONOHYDRATE
     Indication: Chronic lymphocytic leukaemia
     Route: 042
     Dates: start: 202112
  2. FUROSEMIDE [Suspect]
     Active Substance: FUROSEMIDE
     Indication: Cardiac failure
     Dosage: DURATION: 1 DAYS
     Route: 048
     Dates: start: 202203, end: 202203
  3. OFLOXACIN [Suspect]
     Active Substance: OFLOXACIN
     Indication: Pneumonia
     Dosage: DURATION: 1 DAYS
     Route: 048
     Dates: start: 20220320, end: 20220321
  4. HYDROCHLOROTHIAZIDE\RAMIPRIL [Suspect]
     Active Substance: HYDROCHLOROTHIAZIDE\RAMIPRIL
     Indication: Hypertension
     Dosage: LONG COURSE
     Route: 048
     Dates: end: 202203

REACTIONS (3)
  - Acute kidney injury [Recovered/Resolved]
  - Pancytopenia [Not Recovered/Not Resolved]
  - Purpura [Recovered/Resolved]

NARRATIVE: CASE EVENT DATE: 20220301
